FAERS Safety Report 5690824-5 (Version None)
Quarter: 2008Q2

REPORT INFORMATION
  Report Type: 
  Country: None (occurrence: None)
  Receive Date: 20080401
  Receipt Date: 20080321
  Transmission Date: 20081010
  Serious: Yes (Death, Congenital Anomaly)
  Sender: FDA-Public Use
  Company Number: B0513544B

PATIENT
  Sex: Male

DRUGS (1)
  1. LAMICTAL [Suspect]
     Indication: EPILEPSY
     Dosage: 50MG TWICE PER DAY

REACTIONS (13)
  - ANOMALY OF EXTERNAL EAR CONGENITAL [None]
  - ARTHROPATHY [None]
  - CONGENITAL BLADDER ANOMALY [None]
  - CONGENITAL HAND MALFORMATION [None]
  - CONGENITAL NOSE MALFORMATION [None]
  - DANDY-WALKER SYNDROME [None]
  - DRUG EXPOSURE DURING PREGNANCY [None]
  - DYSMORPHISM [None]
  - HYPERTELORISM OF ORBIT [None]
  - RETROGNATHIA [None]
  - TALIPES [None]
  - URETERIC DILATATION [None]
  - URETHRAL STENOSIS [None]
